FAERS Safety Report 10451525 (Version 4)
Quarter: 2015Q3

REPORT INFORMATION
  Report Type: Spontaneous
  Country: JP (occurrence: JP)
  Receive Date: 20140913
  Receipt Date: 20150806
  Transmission Date: 20151125
  Serious: Yes (Hospitalization)
  Sender: FDA-Public Use
  Company Number: JP-AMGEN-JPNCT2014070066

PATIENT
  Age: 48 Year
  Sex: Female
  Weight: 64 kg

DRUGS (11)
  1. METASTRON [Concomitant]
     Active Substance: STRONTIUM CHLORIDE SR-89
     Dosage: UNK
     Route: 065
     Dates: start: 20140117, end: 20140117
  2. ZOMETA [Suspect]
     Active Substance: ZOLEDRONIC ACID
     Indication: METASTASES TO BONE
     Dosage: 1 DF, QD
     Route: 042
     Dates: start: 20070610, end: 20131219
  3. REBAMIPIDE [Concomitant]
     Active Substance: REBAMIPIDE
     Dosage: 1 DF, UNK
     Route: 048
     Dates: start: 20140415
  4. PURSENNID                          /00142207/ [Concomitant]
     Active Substance: SENNOSIDES A AND B
     Dosage: 2 DF, QD
     Route: 048
     Dates: start: 20140418, end: 20140421
  5. LIXIANA [Concomitant]
     Active Substance: EDOXABAN TOSILATE MONOHYDRATE
     Dosage: 1 DF, QD
     Route: 048
     Dates: start: 20140422, end: 20140501
  6. RANMARK [Suspect]
     Active Substance: DENOSUMAB
     Indication: METASTASES TO BONE
     Dosage: 120 MG, UNK
     Route: 058
     Dates: start: 20140116
  7. CEFAZOLIN SODIUM. [Concomitant]
     Active Substance: CEFAZOLIN SODIUM
     Dosage: 2 DF, QD
     Route: 042
     Dates: start: 20140422, end: 20140427
  8. DENOTAS [Concomitant]
     Active Substance: CALCIUM CARBONATE\CHOLECALCIFEROL\MAGNESIUM CARBONATE
     Dosage: 2 DF, QD
     Route: 048
     Dates: start: 20140118
  9. HYSRON H [Concomitant]
     Dosage: UNK
     Route: 065
     Dates: start: 20140116
  10. LOXONIN [Concomitant]
     Active Substance: LOXOPROFEN SODIUM
     Dosage: 60 MG, QD
     Route: 048
     Dates: start: 20140415
  11. TELEMINSOFT [Concomitant]
     Dosage: 1 DF, QD
     Route: 050
     Dates: start: 20140420, end: 20140422

REACTIONS (1)
  - Atypical femur fracture [Recovering/Resolving]

NARRATIVE: CASE EVENT DATE: 20140428
